FAERS Safety Report 7246775-8 (Version None)
Quarter: 2011Q1

REPORT INFORMATION
  Report Type: 
  Country: None (occurrence: None)
  Receive Date: 20110127
  Receipt Date: 20110112
  Transmission Date: 20110831
  Serious: Yes (Other)
  Sender: FDA-Public Use
  Company Number: GXKR2010GB12110

PATIENT
  Age: 83 Year
  Sex: Female

DRUGS (7)
  1. CITALOPRAM HYDROBROMIDE [Interacting]
     Indication: ANXIETY
     Dosage: 10 MG, QD
     Route: 048
  2. CIPROFLOXACIN [Concomitant]
     Indication: INFECTION
     Dosage: 500 MG, UNK
     Route: 048
     Dates: start: 20101014
  3. BENDROFLUAZIDE [Concomitant]
     Indication: HYPERTENSION
     Dosage: 2.5 MG, UNK
     Route: 048
  4. OMEPRAZOLE [Suspect]
     Indication: DYSPEPSIA
     Dosage: 20 MG, UNK
     Route: 048
     Dates: end: 20101017
  5. FLECAINIDE [Concomitant]
     Indication: ARRHYTHMIA
     Dosage: 10 MG, UNK
     Route: 048
  6. MOVICOL [Concomitant]
     Indication: CONSTIPATION
     Dosage: 1 DF, QD
     Route: 048
     Dates: start: 20101014
  7. ZOPICLONE [Concomitant]
     Indication: ANXIETY
     Route: 048

REACTIONS (2)
  - ANGIOEDEMA [None]
  - DRUG INTERACTION [None]
